FAERS Safety Report 15279939 (Version 5)
Quarter: 2019Q1

REPORT INFORMATION
  Report Type: Report from Study
  Country: US (occurrence: US)
  Receive Date: 20180815
  Receipt Date: 20190122
  Transmission Date: 20190417
  Serious: No
  Sender: FDA-Public Use
  Company Number: PHEH2018US033667

PATIENT
  Sex: Female

DRUGS (2)
  1. COSENTYX [Suspect]
     Active Substance: SECUKINUMAB
     Indication: PSORIATIC ARTHROPATHY
     Dosage: 300 MG, QMO
     Route: 058
  2. COSENTYX [Suspect]
     Active Substance: SECUKINUMAB
     Indication: PSORIASIS
     Dosage: 150 MG, QW
     Route: 058

REACTIONS (10)
  - Peripheral swelling [Unknown]
  - Pain [Unknown]
  - Infection [Unknown]
  - Arthralgia [Unknown]
  - Therapeutic response decreased [Unknown]
  - Injection site pain [Unknown]
  - Cervicogenic headache [Unknown]
  - Immune system disorder [Unknown]
  - Neck pain [Unknown]
  - Eye disorder [Unknown]
